FAERS Safety Report 10487317 (Version 1)
Quarter: 2014Q4

REPORT INFORMATION
  Report Type: Spontaneous
  Country: ES (occurrence: ES)
  Receive Date: 20141001
  Receipt Date: 20141001
  Transmission Date: 20150528
  Serious: Yes (Death, Hospitalization)
  Sender: FDA-Public Use
  Company Number: PHHY2014ES125698

PATIENT
  Age: 66 Year
  Sex: Male

DRUGS (3)
  1. IDARUBICIN [Suspect]
     Active Substance: IDARUBICIN
     Indication: ACUTE MONOCYTIC LEUKAEMIA
  2. ETOPOSIDE. [Suspect]
     Active Substance: ETOPOSIDE
     Indication: ACUTE MONOCYTIC LEUKAEMIA
  3. CYTARABINE. [Suspect]
     Active Substance: CYTARABINE
     Indication: ACUTE MONOCYTIC LEUKAEMIA

REACTIONS (13)
  - Candida infection [Fatal]
  - Dyspnoea [Fatal]
  - Generalised erythema [Unknown]
  - Rash macular [Unknown]
  - Fungal infection [Fatal]
  - Pleural effusion [Fatal]
  - Pyrexia [Unknown]
  - Lung infiltration [Fatal]
  - Disseminated intravascular coagulation [Unknown]
  - Staphylococcal infection [Unknown]
  - Cyanosis [Unknown]
  - Respiratory failure [Fatal]
  - Neutropenia [Unknown]
